FAERS Safety Report 6287717-1 (Version None)
Quarter: 2009Q3

REPORT INFORMATION
  Report Type: 
  Country: None (occurrence: None)
  Receive Date: 20090727
  Receipt Date: 20090727
  Transmission Date: 20100115
  Serious: Yes (Disabling)
  Sender: FDA-Public Use
  Company Number: None

PATIENT
  Age: 78 Year
  Sex: Male

DRUGS (1)
  1. AMLODIPINE [Suspect]
     Indication: HYPERTENSION
     Dosage: 10MG, DAILY, PO
     Route: 048
     Dates: start: 20090606, end: 20090622

REACTIONS (2)
  - PRODUCT QUALITY ISSUE [None]
  - RASH [None]
